FAERS Safety Report 9540873 (Version 5)
Quarter: 2014Q1

REPORT INFORMATION
  Report Type: Spontaneous
  Country: GB (occurrence: GB)
  Receive Date: 20130920
  Receipt Date: 20140220
  Transmission Date: 20141002
  Serious: Yes (Death, Life-Threatening, Hospitalization)
  Sender: FDA-Public Use
  Company Number: PHFR2013GB005363

PATIENT
  Age: 54 Year
  Sex: Female

DRUGS (6)
  1. CLOZARIL [Suspect]
     Indication: SCHIZOPHRENIA
     Dosage: UNK
     Route: 048
     Dates: start: 20010701
  2. CLOZARIL [Suspect]
     Dosage: 500 MG, DAILY
     Route: 048
     Dates: start: 2003
  3. EPILIM [Concomitant]
     Indication: EPILEPSY
     Dosage: 600 MG, DAILY
     Route: 048
  4. DIAZEPAM [Concomitant]
     Indication: ANXIETY
     Dosage: 5 MG, DAILY
     Route: 048
  5. DIAZEPAM [Concomitant]
     Indication: SEDATION
  6. ORPHENADRINE [Concomitant]
     Indication: EXTRAPYRAMIDAL DISORDER
     Dosage: 100 MG, DAILY
     Route: 048

REACTIONS (3)
  - Choking [Fatal]
  - Cardiac arrest [Fatal]
  - Loss of consciousness [Unknown]
